FAERS Safety Report 15970317 (Version 1)
Quarter: 2019Q1

REPORT INFORMATION
  Report Type: Report from Study
  Country: US (occurrence: US)
  Receive Date: 20190215
  Receipt Date: 20190215
  Transmission Date: 20190418
  Serious: Yes (Hospitalization, Other)
  Sender: FDA-Public Use
  Company Number: US-AMAG PHARMACEUTICALS, INC.-AMAG201802348

PATIENT
  Age: 40 Year
  Sex: Female

DRUGS (3)
  1. DICLEGIS [Suspect]
     Active Substance: DOXYLAMINE SUCCINATE\PYRIDOXINE HYDROCHLORIDE
     Indication: VOMITING
     Route: 065
  2. MAKENA [Suspect]
     Active Substance: HYDROXYPROGESTERONE CAPROATE
     Indication: PREMATURE DELIVERY
     Dosage: 250 MG/ML, WEEKLY
     Route: 030
     Dates: start: 20180115, end: 20180409
  3. PRENATAL VITAMINS [Concomitant]
     Active Substance: VITAMINS
     Indication: PREGNANCY
     Dosage: UNK
     Route: 065
     Dates: start: 20171229, end: 2018

REACTIONS (3)
  - Premature delivery [Recovered/Resolved]
  - Shortened cervix [Unknown]
  - Placenta praevia haemorrhage [Recovered/Resolved]

NARRATIVE: CASE EVENT DATE: 20180222
